FAERS Safety Report 6593192-X (Version None)
Quarter: 2010Q1

REPORT INFORMATION
  Report Type: 
  Country: None (occurrence: None)
  Receive Date: 20100222
  Receipt Date: 20100216
  Transmission Date: 20100710
  Serious: Yes (Death)
  Sender: FDA-Public Use
  Company Number: PHHY2010CA09020

PATIENT

DRUGS (6)
  1. EXELON [Suspect]
     Indication: DEMENTIA ALZHEIMER'S TYPE
     Dosage: DAILY DOSE OF 10 (NO UNITS PROVIDED)
     Route: 062
     Dates: start: 20090604
  2. ADALAT CC [Concomitant]
     Dosage: 60 (UNITS NOT PROVIDED) DAILY
  3. LOPRESSOR [Concomitant]
     Dosage: 100 (UNITS NOT PROVIDED) DAILY
  4. RISPERDAL [Concomitant]
     Dosage: 0.25 DAILY
  5. DIOVAN [Concomitant]
  6. TOLBUTAMIDE [Concomitant]
     Dosage: 500 (UNITS NOT PROVIDED) DAILY

REACTIONS (1)
  - DEATH [None]
